FAERS Safety Report 12321732 (Version 1)
Quarter: 2016Q2

REPORT INFORMATION
  Report Type: Spontaneous
  Country: US (occurrence: US)
  Receive Date: 20160502
  Receipt Date: 20160502
  Transmission Date: 20160815
  Serious: Yes (Death)
  Sender: FDA-Public Use
  Company Number: US-BEH-2016061843

PATIENT
  Age: 61 Year
  Sex: Female
  Weight: 90 kg

DRUGS (31)
  1. SODIUM CHLORIDE. [Concomitant]
     Active Substance: SODIUM CHLORIDE
  2. FLUNISOLIDE. [Concomitant]
     Active Substance: FLUNISOLIDE
  3. TRAZODONE [Concomitant]
     Active Substance: TRAZODONE HYDROCHLORIDE
  4. PRILOCAINE [Concomitant]
     Active Substance: PRILOCAINE
  5. EPIPEN [Concomitant]
     Active Substance: EPINEPHRINE
  6. ALBUTEROL. [Concomitant]
     Active Substance: ALBUTEROL
  7. SYMBICORT [Concomitant]
     Active Substance: BUDESONIDE\FORMOTEROL FUMARATE DIHYDRATE
  8. ACETAMINOPHEN\HYDROCODONE BITARTRATE [Concomitant]
     Active Substance: ACETAMINOPHEN\HYDROCODONE BITARTRATE
  9. DIPHENHYDRAMINE. [Concomitant]
     Active Substance: DIPHENHYDRAMINE
  10. PROAIR HFA [Concomitant]
     Active Substance: ALBUTEROL SULFATE
  11. VITAMIN C [Concomitant]
     Active Substance: ASCORBIC ACID
  12. SPIRIVA [Concomitant]
     Active Substance: TIOTROPIUM BROMIDE MONOHYDRATE
  13. CYCLOBENZAPRINE [Concomitant]
     Active Substance: CYCLOBENZAPRINE
  14. ACIDOPHILUS [Concomitant]
     Active Substance: LACTOBACILLUS ACIDOPHILUS
  15. MAXZIDE [Concomitant]
     Active Substance: HYDROCHLOROTHIAZIDE\TRIAMTERENE
  16. ZEMAIRA [Suspect]
     Active Substance: .ALPHA.1-PROTEINASE INHIBITOR HUMAN
     Indication: ALPHA-1 ANTI-TRYPSIN DEFICIENCY
     Route: 042
     Dates: start: 20091103
  17. LMX [Concomitant]
     Active Substance: LIDOCAINE
  18. SINGULAIR [Concomitant]
     Active Substance: MONTELUKAST SODIUM
  19. PREMARIN [Concomitant]
     Active Substance: ESTROGENS, CONJUGATED
  20. CALCIUM [Concomitant]
     Active Substance: CALCIUM
  21. VITAMIN D [Concomitant]
     Active Substance: CHOLECALCIFEROL
  22. POTASSIUM GLUC [Concomitant]
  23. OMEPRAZOLE. [Concomitant]
     Active Substance: OMEPRAZOLE
  24. DURAGESIC [Concomitant]
     Active Substance: FENTANYL
  25. LISINOPRIL. [Concomitant]
     Active Substance: LISINOPRIL
  26. ZYRTEC [Concomitant]
     Active Substance: CETIRIZINE HYDROCHLORIDE
  27. HEPARIN [Concomitant]
     Active Substance: HEPARIN SODIUM
  28. LIDOCAINE. [Concomitant]
     Active Substance: LIDOCAINE
  29. GLUCOSAMINE-CHONDRIOTIN [Concomitant]
  30. BIOTIN [Concomitant]
     Active Substance: BIOTIN
  31. ASPIRIN. [Concomitant]
     Active Substance: ASPIRIN

REACTIONS (1)
  - Death [Fatal]

NARRATIVE: CASE EVENT DATE: 20160212
